FAERS Safety Report 4567022-1 (Version None)
Quarter: 2005Q1

REPORT INFORMATION
  Report Type: 
  Country: None (occurrence: None)
  Receive Date: 20050201
  Receipt Date: 20040708
  Transmission Date: 20050727
  Serious: Yes (Other)
  Sender: FDA-Public Use
  Company Number: US-BRISTOL-MYERS SQUIBB COMPANY-12638623

PATIENT
  Age: 28 Year
  Sex: Male

DRUGS (6)
  1. STADOL [Suspect]
     Indication: MIGRAINE
     Route: 045
     Dates: start: 19970101, end: 20010101
  2. NORTRIPTYLINE HCL [Concomitant]
  3. ALPRAZOLAM [Concomitant]
  4. ULTRAM [Concomitant]
  5. METHYLPREDNISOLONE [Concomitant]
  6. PHENERGAN [Concomitant]

REACTIONS (2)
  - DEPENDENCE [None]
  - DRUG WITHDRAWAL SYNDROME [None]
